FAERS Safety Report 4776172-6 (Version None)
Quarter: 2005Q3

REPORT INFORMATION
  Report Type: 
  Country: None (occurrence: None)
  Receive Date: 20050914
  Receipt Date: 20041014
  Transmission Date: 20060218
  Serious: Yes (Death, Hospitalization)
  Sender: FDA-Public Use
  Company Number: 163-20785-04100414

PATIENT
  Age: 84 Year
  Sex: Male

DRUGS (2)
  1. THALOMID [Suspect]
     Indication: CHRONIC MYELOID LEUKAEMIA
     Dosage: SEE IMAGE
     Route: 048
     Dates: end: 20040101
  2. THALOMID [Suspect]
     Indication: CHRONIC MYELOID LEUKAEMIA
     Dosage: SEE IMAGE
     Route: 048
     Dates: start: 20040915

REACTIONS (2)
  - DEATH [None]
  - UNEVALUABLE EVENT [None]
